FAERS Safety Report 24443171 (Version 1)
Quarter: 2024Q4

REPORT INFORMATION
  Report Type: Spontaneous
  Country: US (occurrence: US)
  Receive Date: 20241016
  Receipt Date: 20241016
  Transmission Date: 20250114
  Serious: Yes (Other)
  Sender: HIKMA
  Company Number: US-HIKMA PHARMACEUTICALS USA INC.-US-H14001-24-09538

PATIENT
  Age: 76 Year
  Sex: Male

DRUGS (2)
  1. PREDNISONE [Suspect]
     Active Substance: PREDNISONE
     Indication: Product used for unknown indication
     Dosage: UNK
     Route: 065
  2. CABOMETYX [Concomitant]
     Active Substance: CABOZANTINIB S-MALATE
     Indication: Neuroendocrine tumour
     Dosage: 60 MILLIGRAM, QD
     Route: 048

REACTIONS (5)
  - Ulcerative keratitis [Unknown]
  - Asthenia [Recovering/Resolving]
  - Sleep disorder [Unknown]
  - Pain [Recovering/Resolving]
  - Off label use [Unknown]
